FAERS Safety Report 5881015-3 (Version None)
Quarter: 2008Q3

REPORT INFORMATION
  Report Type: 
  Country: None (occurrence: None)
  Receive Date: 20080912
  Receipt Date: 20080613
  Transmission Date: 20090109
  Serious: No
  Sender: FDA-Public Use
  Company Number: US-ABBOTT-08P-163-0457865-00

PATIENT
  Sex: Female
  Weight: 68.1 kg

DRUGS (8)
  1. HUMIRA [Suspect]
     Indication: COLITIS ULCERATIVE
     Dosage: 160 MG STARTER DOSE
     Route: 058
     Dates: start: 20080201
  2. HUMIRA [Suspect]
     Indication: CROHN'S DISEASE
     Dosage: 80 MG ONCE
     Route: 058
  3. HUMIRA [Suspect]
     Route: 058
     Dates: end: 20080501
  4. HUMIRA [Suspect]
     Route: 058
     Dates: start: 20080522
  5. MERCAPTOPURINE [Concomitant]
     Indication: COLITIS ULCERATIVE
     Route: 048
  6. MERCAPTOPURINE [Concomitant]
     Indication: CROHN'S DISEASE
  7. COLZAL [Concomitant]
     Indication: COLITIS ULCERATIVE
     Route: 048
     Dates: start: 20060101
  8. COLZAL [Concomitant]
     Indication: CROHN'S DISEASE

REACTIONS (6)
  - ABDOMINAL PAIN [None]
  - ABDOMINAL PAIN UPPER [None]
  - ANAEMIA [None]
  - CROHN'S DISEASE [None]
  - DIARRHOEA [None]
  - RECTAL HAEMORRHAGE [None]
